FAERS Safety Report 9917637 (Version 1)
Quarter: 2014Q1

REPORT INFORMATION
  Report Type: Spontaneous
  Country: IN (occurrence: IN)
  Receive Date: 20140221
  Receipt Date: 20140221
  Transmission Date: 20141002
  Serious: Yes (Life-Threatening, Other)
  Sender: FDA-Public Use
  Company Number: IN-009507513-1402IND009069

PATIENT
  Age: 44 Year
  Sex: Female
  Weight: 53 kg

DRUGS (2)
  1. JANUVIA [Suspect]
     Indication: DIABETES MELLITUS
     Dosage: 1 DF, UNK
     Route: 048
  2. [THERAPY UNSPECIFIED] [Concomitant]
     Indication: BLOOD CHOLESTEROL

REACTIONS (2)
  - Loss of consciousness [Recovered/Resolved]
  - Hypoglycaemia [Recovered/Resolved]
